FAERS Safety Report 9674601 (Version 1)
Quarter: 2013Q4

REPORT INFORMATION
  Report Type: Spontaneous
  Country: US (occurrence: None)
  Receive Date: 20131106
  Receipt Date: 20131106
  Transmission Date: 20140711
  Serious: Yes (Disabling)
  Sender: FDA-Public Use
  Company Number: None

PATIENT
  Age: 24 Year
  Sex: Female
  Weight: 41.73 kg

DRUGS (7)
  1. TRI-SPRINTEC [Suspect]
     Indication: MENSTRUATION IRREGULAR
     Dosage: 28 DAY 1 PILL DAILY ONCE DAILY
     Route: 048
     Dates: start: 20130721, end: 20130826
  2. TRI-SPRINTEC [Suspect]
     Indication: OVARIAN CYST
     Dosage: 28 DAY 1 PILL DAILY ONCE DAILY
     Route: 048
     Dates: start: 20130721, end: 20130826
  3. OMEPRAZOLE [Concomitant]
  4. FLUOXETINE [Concomitant]
  5. DICYCLOMINE [Concomitant]
  6. MIRTAZAPINE [Concomitant]
  7. PREVIDENT [Concomitant]

REACTIONS (3)
  - Breast tenderness [None]
  - Pain [None]
  - Lymphadenopathy [None]
